FAERS Safety Report 14071460 (Version 2)
Quarter: 2017Q4

REPORT INFORMATION
  Report Type: Spontaneous
  Country: TH (occurrence: TH)
  Receive Date: 20171011
  Receipt Date: 20171017
  Transmission Date: 20180321
  Serious: Yes (Other)
  Sender: FDA-Public Use
  Company Number: PHHY2017TH148861

PATIENT

DRUGS (1)
  1. VOTRIENT [Suspect]
     Active Substance: PAZOPANIB HYDROCHLORIDE
     Indication: METASTATIC RENAL CELL CARCINOMA
     Dosage: 800 MG, QD (2 WEEKS)
     Route: 065

REACTIONS (2)
  - Acute coronary syndrome [Unknown]
  - Cardiac failure [Unknown]
